FAERS Safety Report 9088784 (Version 2)
Quarter: 2013Q2

REPORT INFORMATION
  Report Type: Spontaneous
  Country: DE (occurrence: DE)
  Receive Date: 20130201
  Receipt Date: 20130403
  Transmission Date: 20140414
  Serious: Yes (Life-Threatening)
  Sender: FDA-Public Use
  Company Number: DE-009507513-1301DEU014526

PATIENT
  Age: 70 Year
  Sex: Female

DRUGS (1)
  1. MIRTAZAPIN STADA [Suspect]
     Dosage: 15 MG, UNK
     Route: 048

REACTIONS (1)
  - Suicide attempt [Unknown]
